FAERS Safety Report 24424236 (Version 1)
Quarter: 2024Q4

REPORT INFORMATION
  Report Type: Spontaneous
  Country: US (occurrence: None)
  Receive Date: 20241010
  Receipt Date: 20241010
  Transmission Date: 20250115
  Serious: No
  Sender: Public
  Company Number: None

PATIENT
  Age: 31 Year
  Sex: Female

DRUGS (1)
  1. CREST DEEP CLEANSE MOUTHWASH CAVITY DEFENSE CLEAN MINT [Suspect]
     Active Substance: SODIUM FLUORIDE
     Dates: start: 20241004, end: 20241008

REACTIONS (1)
  - Mouth ulceration [None]

NARRATIVE: CASE EVENT DATE: 20241008
